FAERS Safety Report 9098972 (Version 2)
Quarter: 2013Q2

REPORT INFORMATION
  Report Type: Spontaneous
  Country: FR (occurrence: FR)
  Receive Date: 20130214
  Receipt Date: 20130412
  Transmission Date: 20140414
  Serious: Yes (Hospitalization)
  Sender: FDA-Public Use
  Company Number: PHHY2013FR013433

PATIENT
  Sex: Female

DRUGS (20)
  1. AMOXICILLIN+CLAVULANATE SANDOZ [Suspect]
     Indication: INFECTION
     Dosage: 1 G, TID
     Route: 042
     Dates: start: 20121207, end: 20121217
  2. RANITIDINE [Suspect]
     Route: 048
     Dates: start: 20121217
  3. ALPRAZOLAM [Suspect]
     Route: 048
     Dates: start: 20130107
  4. ALDACTONE [Suspect]
     Dosage: 1 DF, QD
     Route: 048
     Dates: start: 20121226
  5. FUCIDINE [Suspect]
     Indication: INFECTION
     Dosage: 1 G, DAILY
     Route: 048
     Dates: start: 20121205, end: 20121212
  6. LERCAN [Concomitant]
     Dosage: 10 MG, DAILY
  7. NEBILOX [Concomitant]
     Dosage: 5 MG, DAILY
  8. KARDEGIC [Concomitant]
     Dosage: 75 MG, DAILY
  9. TEMESTA [Concomitant]
     Dosage: 1 MG, DAILY
  10. ALDACTAZINE [Concomitant]
     Dosage: 1 DF, DAILY
     Dates: end: 20121226
  11. CRESTOR [Concomitant]
     Dosage: 5 MG, DAILY
     Dates: end: 20130111
  12. MILFONIL [Concomitant]
     Dosage: 200 UG, BID
  13. DOLIPRANE [Concomitant]
     Dosage: 3 G, PRN
     Dates: end: 20130117
  14. INEXIUM//ESOMEPRAZOLE SODIUM [Concomitant]
     Dosage: 20 MG, DAILY
     Dates: end: 20121217
  15. SKENAN [Concomitant]
     Dosage: 20 MG, DAILY
     Dates: start: 20121210
  16. ACTISKENAN [Concomitant]
     Dosage: 4 DF, DAILY
  17. SMECTA [Concomitant]
  18. KAYEXALATE [Concomitant]
     Indication: HYPERKALAEMIA
  19. LOVENOX [Concomitant]
     Dosage: 4000 IU, DAILY
     Dates: start: 20121207, end: 20121217
  20. LOVENOX [Concomitant]
     Dosage: 4000 IU, DAILY
     Dates: start: 20121224

REACTIONS (2)
  - Hepatocellular injury [Not Recovered/Not Resolved]
  - Cholestasis [Not Recovered/Not Resolved]
